FAERS Safety Report 9816111 (Version 2)
Quarter: 2014Q4

REPORT INFORMATION
  Report Type: Spontaneous
  Country: US (occurrence: US)
  Receive Date: 20140114
  Receipt Date: 20141027
  Transmission Date: 20150529
  Serious: Yes (Death, Hospitalization)
  Sender: FDA-Public Use
  Company Number: US-PFIZER INC-2014007012

PATIENT
  Age: 2 Year
  Sex: Female
  Weight: 14.29 kg

DRUGS (1)
  1. LOMOTIL [Suspect]
     Active Substance: ATROPINE SULFATE\DIPHENOXYLATE HYDROCHLORIDE
     Dosage: UNK
     Route: 048
     Dates: start: 20120918, end: 20120918

REACTIONS (7)
  - Coma [Fatal]
  - Brain oedema [Fatal]
  - Accidental exposure to product by child [Fatal]
  - Accidental overdose [Fatal]
  - Hypoxic-ischaemic encephalopathy [Fatal]
  - Respiratory failure [Fatal]
  - Brain death [Fatal]

NARRATIVE: CASE EVENT DATE: 20120918
